FAERS Safety Report 5498921-4 (Version None)
Quarter: 2007Q4

REPORT INFORMATION
  Report Type: 
  Country: None (occurrence: None)
  Receive Date: 20071024
  Receipt Date: 20071024
  Transmission Date: 20080405
  Serious: Yes (Life-Threatening, Other)
  Sender: FDA-Public Use
  Company Number: None

PATIENT
  Age: 66 Year
  Sex: Female
  Weight: 76.2043 kg

DRUGS (1)
  1. EQUATE ANTIHISTABS CHLOR.MAL. 4MG; PHENYLEPHRINE PKG-LINK INT'L INC; D [Suspect]
     Indication: SINUS CONGESTION
     Dosage: 1/2 TAB ONE TIME ONLY PO
     Route: 048

REACTIONS (3)
  - BLOOD PRESSURE INCREASED [None]
  - FACIAL PAIN [None]
  - NAUSEA [None]
